FAERS Safety Report 5680137 (Version 2)
Quarter: 2020Q3

REPORT INFORMATION
  Report Type: Report from Study
  Country: US (occurrence: US)
  Receive Date: 20041123
  Receipt Date: 20041124
  Transmission Date: 20201104
  Serious: Yes (Hospitalization)
  Sender: FDA-Public Use
  Company Number: US-JNJFOC-20041002401

PATIENT
  Age: 69 Year
  Sex: Female
  Weight: 45.59 kg

DRUGS (11)
  1. IMDUR [Concomitant]
     Active Substance: ISOSORBIDE MONONITRATE
     Route: 049
  2. COUMADIN [Concomitant]
     Active Substance: WARFARIN SODIUM
  3. K?DUR [Concomitant]
     Active Substance: POTASSIUM CHLORIDE
     Route: 049
  4. NESIRITIDE [Suspect]
     Active Substance: NESIRITIDE
     Route: 042
  5. LISINOPRIL. [Concomitant]
     Active Substance: LISINOPRIL
  6. LEVOTHYROXINE SODIUM. [Concomitant]
     Active Substance: LEVOTHYROXINE SODIUM
  7. ZYPREXA [Concomitant]
     Active Substance: OLANZAPINE
  8. LASIX [Suspect]
     Active Substance: FUROSEMIDE
     Route: 049
  9. COREG [Concomitant]
     Active Substance: CARVEDILOL
     Route: 049
  10. OXYCODONE HYDROCHLORIDE. [Concomitant]
     Active Substance: OXYCODONE HYDROCHLORIDE
     Indication: ARTHRITIS
  11. PREVACID [Concomitant]
     Active Substance: LANSOPRAZOLE

REACTIONS (6)
  - Cardiomegaly [None]
  - Acute kidney injury [Not Recovered/Not Resolved]
  - Cardiac murmur [None]
  - Dehydration [None]
  - Crepitations [None]
  - Oedema [None]

NARRATIVE: CASE EVENT DATE: 20040930
